FAERS Safety Report 18088688 (Version 2)
Quarter: 2020Q3

REPORT INFORMATION
  Report Type: Spontaneous
  Country: US (occurrence: US)
  Receive Date: 20200729
  Receipt Date: 20200804
  Transmission Date: 20201103
  Serious: Yes (Other)
  Sender: FDA-Public Use
  Company Number: US-PFIZER INC-2020286460

PATIENT
  Age: 51 Year
  Sex: Female
  Weight: 87.09 kg

DRUGS (2)
  1. PROGESTERONE. [Suspect]
     Active Substance: PROGESTERONE
     Dosage: UNK
  2. PREMARIN [Suspect]
     Active Substance: ESTROGENS, CONJUGATED
     Indication: MENOPAUSE
     Dosage: UNK
     Dates: start: 2020, end: 202006

REACTIONS (3)
  - Drug ineffective [Unknown]
  - Vaginal haemorrhage [Unknown]
  - Weight increased [Unknown]
